FAERS Safety Report 7226519-6 (Version None)
Quarter: 2011Q1

REPORT INFORMATION
  Report Type: 
  Country: None (occurrence: None)
  Receive Date: 20110114
  Receipt Date: 20110106
  Transmission Date: 20110831
  Serious: Yes (Other)
  Sender: FDA-Public Use
  Company Number: AU-JNJFOC-20110102084

PATIENT
  Sex: Female

DRUGS (4)
  1. REMICADE [Suspect]
     Route: 042
  2. REMICADE [Suspect]
     Indication: HIDRADENITIS
     Route: 042
  3. METFORMIN HCL [Concomitant]
     Dosage: DOSE INCREASED
  4. REMICADE [Suspect]
     Route: 042

REACTIONS (1)
  - BLOOD GLUCOSE INCREASED [None]
